FAERS Safety Report 6744405-2 (Version None)
Quarter: 2010Q2

REPORT INFORMATION
  Report Type: 
  Country: None (occurrence: None)
  Receive Date: 20100527
  Receipt Date: 20100518
  Transmission Date: 20101027
  Serious: Yes (Other)
  Sender: FDA-Public Use
  Company Number: JP-PFIZER INC-2010060149

PATIENT
  Age: 27 Year
  Sex: Female

DRUGS (8)
  1. ZITHROMAC SR [Suspect]
     Indication: CHRONIC SINUSITIS
     Dosage: 2G/DAY
     Route: 048
     Dates: start: 20100430, end: 20100430
  2. ANTIDIARRHOEAL MICROORGANISMS [Concomitant]
     Dosage: UNK
     Route: 048
  3. TRANSAMIN [Concomitant]
     Dosage: UNK
     Route: 048
  4. LYSOZYME HYDROCHLORIDE [Concomitant]
     Dosage: UNK
     Route: 048
  5. MUCODYNE [Concomitant]
     Dosage: UNK
     Route: 048
  6. FLAVERIC [Concomitant]
     Dosage: UNK
     Route: 048
  7. ONON [Concomitant]
     Dosage: UNK
     Route: 048
  8. PREDONINE [Concomitant]
     Dosage: UNK
     Route: 048

REACTIONS (1)
  - CHEST DISCOMFORT [None]
